FAERS Safety Report 13033072 (Version 2)
Quarter: 2017Q1

REPORT INFORMATION
  Report Type: Spontaneous
  Country: FR (occurrence: FR)
  Receive Date: 20161215
  Receipt Date: 20170105
  Transmission Date: 20170428
  Serious: Yes (Death, Other)
  Sender: FDA-Public Use
  Company Number: FR-BRISTOL-MYERS SQUIBB COMPANY-BMS-2016-105368

PATIENT
  Age: 59 Year
  Sex: Male

DRUGS (7)
  1. ZOFRAN [Concomitant]
     Active Substance: ONDANSETRON HYDROCHLORIDE
     Indication: NAUSEA
     Dosage: 16 MG, UNK
     Route: 048
     Dates: start: 20161210, end: 20161215
  2. HALDOL [Suspect]
     Active Substance: HALOPERIDOL
     Indication: METASTATIC MALIGNANT MELANOMA
     Dosage: 11 MG, UNK
     Route: 048
     Dates: start: 20161107, end: 20161129
  3. MIDAZOLAM [Concomitant]
     Active Substance: MIDAZOLAM HYDROCHLORIDE
     Indication: ANXIETY
     Dosage: 24 MG, UNK
     Route: 042
     Dates: start: 20161213, end: 20161215
  4. NIVOLUMAB [Suspect]
     Active Substance: NIVOLUMAB
     Indication: METASTATIC MALIGNANT MELANOMA
     Dosage: UNAVAILABLE
     Route: 042
     Dates: start: 20161017, end: 20161110
  5. IPILIMUMAB [Suspect]
     Active Substance: IPILIMUMAB
     Indication: METASTATIC MALIGNANT MELANOMA
     Dosage: UNK
     Route: 042
     Dates: start: 20161017, end: 20161110
  6. OXYNORM [Concomitant]
     Active Substance: OXYCODONE HYDROCHLORIDE
     Indication: PAIN
     Dosage: 72 MG, UNK
     Route: 042
     Dates: start: 20161210, end: 20161215
  7. LEXOMIL [Concomitant]
     Active Substance: BROMAZEPAM
     Indication: ANXIETY
     Dosage: 3 MG, UNK
     Route: 048
     Dates: start: 20161210

REACTIONS (2)
  - Pancytopenia [Unknown]
  - Malignant neoplasm progression [Fatal]

NARRATIVE: CASE EVENT DATE: 20161129
